FAERS Safety Report 5152215-5 (Version None)
Quarter: 2006Q4

REPORT INFORMATION
  Report Type: 
  Country: None (occurrence: None)
  Receive Date: 20061109
  Receipt Date: 20061027
  Transmission Date: 20070319
  Serious: Yes (Death, Hospitalization, Disabling)
  Sender: FDA-Public Use
  Company Number: 15066

PATIENT
  Age: 63 Year
  Sex: Female

DRUGS (12)
  1. VINORELBINE [Suspect]
     Indication: BREAST CANCER
     Dates: start: 20060201, end: 20060401
  2. AMOXICILLIN [Concomitant]
  3. ASPIRIN [Concomitant]
  4. CANDESARTAN [Concomitant]
  5. DEXAMETHASONE 4MG TAB [Concomitant]
  6. ERYTHROMYCIN [Concomitant]
  7. FUROSEMIDE [Concomitant]
  8. MORPHINE [Concomitant]
  9. MOVICOL [Concomitant]
  10. OMEPRAZOLE [Concomitant]
  11. ORAMORPH SR [Concomitant]
  12. ACETAMINOPHEN [Concomitant]

REACTIONS (3)
  - ALVEOLITIS [None]
  - CRYPTOGENIC ORGANISING PNEUMONIA [None]
  - METASTASIS [None]
